FAERS Safety Report 9254520 (Version 1)
Quarter: 2013Q2

REPORT INFORMATION
  Report Type: Spontaneous
  Country: US (occurrence: None)
  Receive Date: 20130422
  Receipt Date: 20130422
  Transmission Date: 20140414
  Serious: Yes (Hospitalization)
  Sender: FDA-Public Use
  Company Number: 1672514

PATIENT
  Age: 53 Year
  Sex: Male

DRUGS (6)
  1. DIPHENHYDRAMINE HCL [Suspect]
     Indication: PRODUCT USED FOR UNKNOWN INDICATION
     Dosage: INTRAVENOUS (NOT OTHERWISE SPECIFIED)?
     Route: 042
     Dates: start: 20130207, end: 20130207
  2. LORAZEPAM [Suspect]
     Indication: PRODUCT USED FOR UNKNOWN INDICATION
     Dosage: INTRAVENOUS (NOT OTHERWISE SPECIFIED)?
     Route: 042
     Dates: start: 20130207
  3. CARBAMAZEPINE [Suspect]
     Indication: PRODUCT USED FOR UNKNOWN INDICATION
     Dosage: ( 1 HOUR )
     Route: 048
     Dates: start: 20130207, end: 20130207
  4. DIAZEPAM [Suspect]
     Indication: ANXIETY
     Dosage: INTRAVENOUS (NOT OTHERWISE SPECIFIED)?
     Route: 042
     Dates: start: 20130207
  5. TONABERSAT [Suspect]
     Indication: PRODUCT USED FOR UNKNOWN INDICATION
     Route: 048
     Dates: start: 20130206, end: 20130206
  6. SODIUM CHLORIDE [Concomitant]

REACTIONS (12)
  - Tachycardia [None]
  - Blood pressure increased [None]
  - Supraventricular tachycardia [None]
  - Sinus tachycardia [None]
  - Dizziness [None]
  - Nervousness [None]
  - Anxiety [None]
  - Agitation [None]
  - Irritability [None]
  - Delusion [None]
  - Speech disorder [None]
  - Abnormal behaviour [None]
